FAERS Safety Report 11890005 (Version 2)
Quarter: 2016Q1

REPORT INFORMATION
  Report Type: Spontaneous
  Country: US (occurrence: US)
  Receive Date: 20160105
  Receipt Date: 20160308
  Transmission Date: 20160526
  Serious: Yes (Hospitalization, Other)
  Sender: FDA-Public Use
  Company Number: US-PFIZER INC-2015477262

PATIENT
  Age: 73 Year
  Sex: Female
  Weight: 66.21 kg

DRUGS (3)
  1. DILANTIN [Suspect]
     Active Substance: PHENYTOIN
     Dosage: 100 MG, 4X/DAY
     Dates: start: 198412
  2. DILANTIN [Suspect]
     Active Substance: PHENYTOIN
     Indication: SEIZURE
     Dosage: UNK (FIVE TO SIX TIMES DAY)
     Route: 048
  3. DILANTIN [Suspect]
     Active Substance: PHENYTOIN
     Indication: ARTERIOVENOUS MALFORMATION
     Dosage: 100 MG, 3X/DAY
     Route: 048
     Dates: start: 198412

REACTIONS (7)
  - Cardiac disorder [Unknown]
  - Hypotension [Unknown]
  - Wrong drug administered [Recovered/Resolved]
  - Loss of consciousness [Recovered/Resolved]
  - Diabetic neuropathy [Unknown]
  - Generalised tonic-clonic seizure [Recovered/Resolved]
  - Dizziness [Recovered/Resolved]

NARRATIVE: CASE EVENT DATE: 201503
